FAERS Safety Report 9546902 (Version 1)
Quarter: 2013Q2

REPORT INFORMATION
  Report Type: Spontaneous
  Country: US (occurrence: None)
  Receive Date: 20130606
  Receipt Date: 20130606
  Transmission Date: 20140414
  Serious: Yes (Other)
  Sender: FDA-Public Use
  Company Number: 2013PROUSA02754

PATIENT
  Age: 68 Year
  Sex: Male
  Weight: 172.8 kg

DRUGS (10)
  1. PROVENGE (SIPULEUCEL-T) SUSPENSION [Suspect]
     Indication: PROSTATE CANCER
     Route: 042
     Dates: start: 20130518, end: 20130518
  2. ADVIL (IBUPROFEN) [Concomitant]
  3. ASPIRIN (ACETYLSALICYLIC ACID) [Concomitant]
  4. CALCIUM+D (CALCIUM CARBONATE, COLECALCIFEROL) [Concomitant]
  5. FISH OIL [Concomitant]
  6. MULTIVITAMIN (VITAMIN NOS) [Concomitant]
  7. VITAMIN D3 (COLECALCIFEROL) [Concomitant]
  8. ZINC [Concomitant]
  9. ZOLADEX (GOSERELIN ACETATE) [Concomitant]
  10. ZOLEDRONIC ACID [Concomitant]

REACTIONS (2)
  - Disease progression [None]
  - Blood potassium increased [None]
